FAERS Safety Report 4750027-5 (Version None)
Quarter: 2005Q3

REPORT INFORMATION
  Report Type: 
  Country: None (occurrence: None)
  Receive Date: 20050822
  Receipt Date: 20040510
  Transmission Date: 20060218
  Serious: Yes (Death, Hospitalization)
  Sender: FDA-Public Use
  Company Number: US-MERCK-0405USA00640

PATIENT
  Age: 45 Year
  Sex: Female
  Weight: 82 kg

DRUGS (21)
  1. LASIX [Concomitant]
     Route: 065
  2. AZATHIOPRINE [Concomitant]
     Route: 048
  3. DIFLUCAN [Concomitant]
     Route: 065
  4. ZYBAN [Concomitant]
     Route: 065
  5. ACTIGALL [Concomitant]
     Route: 065
  6. METHOTREXATE [Concomitant]
     Route: 065
     Dates: start: 20000101
  7. CELEBREX [Concomitant]
     Route: 065
     Dates: end: 20000301
  8. VIOXX [Suspect]
     Indication: RHEUMATOID ARTHRITIS
     Route: 048
     Dates: start: 20000401
  9. VIOXX [Suspect]
     Indication: SHOULDER PAIN
     Route: 048
     Dates: start: 20000401
  10. INSULIN HUMAN, ISOPHANE [Concomitant]
     Route: 058
  11. PREDNISONE [Concomitant]
     Route: 065
  12. ZAROXOLYN [Concomitant]
     Route: 065
  13. LIPITOR [Concomitant]
     Route: 065
  14. SPIRONOLACTONE [Concomitant]
     Route: 065
  15. WELLBUTRIN [Concomitant]
     Route: 065
  16. PREMPHASE 14/14 [Concomitant]
     Route: 065
  17. ACTONEL [Concomitant]
     Route: 065
  18. PLAQUENIL [Concomitant]
     Route: 065
  19. COLACE [Concomitant]
     Route: 065
  20. K-DUR 10 [Concomitant]
     Route: 065
  21. ULTRAM [Concomitant]
     Route: 048

REACTIONS (6)
  - BRAIN STEM INFARCTION [None]
  - CARDIAC FAILURE CONGESTIVE [None]
  - CONVULSION [None]
  - LEUKOCYTOSIS [None]
  - RASH [None]
  - RESPIRATORY FAILURE [None]
